FAERS Safety Report 11811415 (Version 2)
Quarter: 2015Q4

REPORT INFORMATION
  Report Type: Spontaneous
  Country: US (occurrence: US)
  Receive Date: 20151208
  Receipt Date: 20151228
  Transmission Date: 20160305
  Serious: No
  Sender: FDA-Public Use
  Company Number: US-PFIZER INC-2015427170

PATIENT
  Age: 55 Year
  Sex: Female

DRUGS (1)
  1. PREMARIN [Suspect]
     Active Substance: ESTROGENS, CONJUGATED

REACTIONS (4)
  - Stomatitis [Unknown]
  - Poor quality drug administered [Unknown]
  - Product contamination [Unknown]
  - Skin reaction [Unknown]
